FAERS Safety Report 8539000-9 (Version None)
Quarter: 2012Q3

REPORT INFORMATION
  Report Type: 
  Country: None (occurrence: None)
  Receive Date: 20120726
  Receipt Date: 20120723
  Transmission Date: 20120928
  Serious: Yes (Other)
  Sender: FDA-Public Use
  Company Number: PHEH2012US010822

PATIENT
  Sex: Male
  Weight: 83 kg

DRUGS (5)
  1. VITAMIN B COMPLEX CAP [Concomitant]
  2. VITAMIN B-12 [Concomitant]
  3. ASPIRIN [Concomitant]
  4. GLEEVEC [Suspect]
     Indication: GASTROINTESTINAL STROMAL TUMOUR
     Dosage: 400 MG, DAILY
     Route: 048
     Dates: start: 20120203, end: 20120515
  5. HYDROCHLOROTHIAZIDE [Concomitant]
     Indication: HYPERTENSION

REACTIONS (7)
  - HEPATOCELLULAR INJURY [None]
  - RASH PRURITIC [None]
  - LEUKOPENIA [None]
  - HEPATIC FUNCTION ABNORMAL [None]
  - HEPATITIS [None]
  - TRANSAMINASES INCREASED [None]
  - MUSCLE SPASMS [None]
